FAERS Safety Report 14795522 (Version 4)
Quarter: 2021Q3

REPORT INFORMATION
  Report Type: Spontaneous
  Country: IT (occurrence: IT)
  Receive Date: 20180423
  Receipt Date: 20210722
  Transmission Date: 20211014
  Serious: Yes (Hospitalization, Other)
  Sender: FDA-Public Use
  Company Number: PHHY2017IT054570

PATIENT
  Age: 10 Year
  Sex: Female

DRUGS (6)
  1. IBUPROFEN. [Suspect]
     Active Substance: IBUPROFEN
     Indication: DRUG PROVOCATION TEST
     Dosage: 10 MG/KG
     Route: 048
  2. FLUTICASONE. [Concomitant]
     Active Substance: FLUTICASONE
     Indication: ASTHMA
     Dosage: UNK
     Route: 065
  3. PARACETAMOL [Concomitant]
     Active Substance: ACETAMINOPHEN
     Indication: PRODUCT USED FOR UNKNOWN INDICATION
     Dosage: UNK
     Route: 065
  4. FLUTICASONE PROPIONATE. [Concomitant]
     Active Substance: FLUTICASONE PROPIONATE
     Indication: ASTHMA
     Dosage: UNK
     Route: 065
  5. IBUPROFEN. [Suspect]
     Active Substance: IBUPROFEN
     Dosage: 500 MG
     Route: 048
  6. FLURBIPROFEN. [Suspect]
     Active Substance: FLURBIPROFEN
     Indication: LARYNGITIS
     Dosage: 8.75 MG
     Route: 048

REACTIONS (13)
  - Swollen tongue [Recovered/Resolved]
  - Paraesthesia oral [Recovering/Resolving]
  - Lip oedema [Unknown]
  - Anaphylactic reaction [Recovered/Resolved]
  - Paraesthesia [Recovered/Resolved]
  - Hypersensitivity [Recovered/Resolved]
  - Lip swelling [Recovered/Resolved]
  - Erythema [Recovering/Resolving]
  - Eyelid oedema [Recovered/Resolved]
  - Angioedema [Recovered/Resolved]
  - Hypoaesthesia oral [Recovered/Resolved]
  - Laryngeal oedema [Recovered/Resolved]
  - Drug hypersensitivity [Recovered/Resolved]
